FAERS Safety Report 8117689-6 (Version None)
Quarter: 2012Q1

REPORT INFORMATION
  Report Type: 
  Country: None (occurrence: None)
  Receive Date: 20120203
  Receipt Date: 20120203
  Transmission Date: 20120608
  Serious: Yes (Other)
  Sender: FDA-Public Use
  Company Number: None

PATIENT
  Age: 84 Year
  Sex: Male

DRUGS (7)
  1. TAMSULOSIN HCL [Concomitant]
  2. LISINOPRIL [Concomitant]
  3. REVLIMID [Suspect]
     Indication: MYELODYSPLASTIC SYNDROME
     Dosage: REVLIMID 5 MG DAILY ORALLY
     Route: 048
     Dates: start: 20111201
  4. PRAVASTATIN [Concomitant]
  5. RENITIDINE [Concomitant]
  6. BUMETANIDE [Concomitant]
  7. GLIPIZIDE [Concomitant]

REACTIONS (2)
  - THROMBOCYTOPENIA [None]
  - NEUTROPENIA [None]
